FAERS Safety Report 15013703 (Version 1)
Quarter: 2018Q2

REPORT INFORMATION
  Report Type: Spontaneous
  Country: US (occurrence: US)
  Receive Date: 20180614
  Receipt Date: 20180614
  Transmission Date: 20180711
  Serious: No
  Sender: FDA-Public Use
  Company Number: US-GALDERMA-US18008941

PATIENT
  Age: 15 Year
  Sex: Male

DRUGS (5)
  1. PROACTIV DEEP CLEANSING WASH [Concomitant]
     Active Substance: SALICYLIC ACID
     Indication: PROPHYLAXIS
     Route: 061
     Dates: start: 20180115, end: 20180120
  2. PROACTIV MD DEEP CLEANSING FACE WASH [Concomitant]
     Active Substance: COSMETICS
     Indication: PROPHYLAXIS
     Route: 061
     Dates: start: 20180115, end: 20180120
  3. PROACTIV MD ADAPALENE ACNE TREATMENT [Suspect]
     Active Substance: ADAPALENE
     Indication: PROPHYLAXIS
     Dosage: 0.1%
     Route: 061
     Dates: start: 20180115, end: 20180120
  4. PROACTIV SOLUTION BLACKHEAD DISSOLVING [Concomitant]
     Active Substance: SALICYLIC ACID
     Indication: PROPHYLAXIS
     Route: 061
     Dates: start: 20180115, end: 20180120
  5. PROACTIV SOLUTION DAILY PROTECTION PLUS SUNSCREEN SPF 30 [Suspect]
     Active Substance: AVOBENZONE\HOMOSALATE\OCTINOXATE\OCTISALATE\OXYBENZONE
     Indication: PROPHYLAXIS
     Route: 061
     Dates: start: 20180115, end: 20180120

REACTIONS (4)
  - Scratch [Not Recovered/Not Resolved]
  - Acne [Not Recovered/Not Resolved]
  - Skin burning sensation [Not Recovered/Not Resolved]
  - Product use in unapproved indication [Recovered/Resolved]

NARRATIVE: CASE EVENT DATE: 20180115
